FAERS Safety Report 20478150 (Version 5)
Quarter: 2022Q1

REPORT INFORMATION
  Report Type: Report from Study
  Country: AU (occurrence: AU)
  Receive Date: 20220216
  Receipt Date: 20220303
  Transmission Date: 20220423
  Serious: Yes (Hospitalization)
  Sender: FDA-Public Use
  Company Number: AU-ABBVIE-22K-008-4279198-00

PATIENT
  Age: 57 Year
  Sex: Male

DRUGS (2)
  1. CARBIDOPA\LEVODOPA [Suspect]
     Active Substance: CARBIDOPA\LEVODOPA
     Indication: Parkinson^s disease
     Dosage: 100ML GEL CASSETTE
     Route: 050
     Dates: start: 20160801
  2. CARBIDOPA\LEVODOPA [Suspect]
     Active Substance: CARBIDOPA\LEVODOPA
     Route: 050

REACTIONS (11)
  - Device breakage [Unknown]
  - Chills [Unknown]
  - Pyrexia [Unknown]
  - Stoma site extravasation [Unknown]
  - Tachypnoea [Unknown]
  - Off label use [Not Recovered/Not Resolved]
  - Device dislocation [Recovered/Resolved]
  - Dysphagia [Unknown]
  - Therapeutic product effect incomplete [Unknown]
  - Device occlusion [Recovered/Resolved]
  - Device dislocation [Recovered/Resolved]

NARRATIVE: CASE EVENT DATE: 20200223
